FAERS Safety Report 15365116 (Version 3)
Quarter: 2018Q4

REPORT INFORMATION
  Report Type: Spontaneous
  Country: CA (occurrence: CA)
  Receive Date: 20180910
  Receipt Date: 20181122
  Transmission Date: 20190204
  Serious: Yes (Other)
  Sender: FDA-Public Use
  Company Number: CA-BRISTOL-MYERS SQUIBB COMPANY-BMS-2018-081679

PATIENT
  Age: 68 Year
  Sex: Male

DRUGS (2)
  1. LIPITOR [Concomitant]
     Active Substance: ATORVASTATIN CALCIUM
     Indication: PRODUCT USED FOR UNKNOWN INDICATION
     Dosage: 20 MG, UNK
     Route: 065
     Dates: end: 20180814
  2. OPDIVO [Suspect]
     Active Substance: NIVOLUMAB
     Indication: RENAL CELL CARCINOMA
     Dosage: 340 MG, Q2WK
     Route: 042
     Dates: start: 20180625, end: 20180807

REACTIONS (3)
  - Gamma-glutamyltransferase increased [Recovering/Resolving]
  - Primary biliary cholangitis [Unknown]
  - Blood alkaline phosphatase increased [Recovering/Resolving]

NARRATIVE: CASE EVENT DATE: 20180709
